FAERS Safety Report 9669291 (Version 3)
Quarter: 2013Q4

REPORT INFORMATION
  Report Type: Report from Study
  Country: GB (occurrence: GB)
  Receive Date: 20131105
  Receipt Date: 20131125
  Transmission Date: 20140711
  Serious: Yes (Hospitalization)
  Sender: FDA-Public Use
  Company Number: GB-INCYTE CORPORATION-2013IN002347

PATIENT
  Sex: 0

DRUGS (2)
  1. INC424 [Suspect]
     Indication: MYELOFIBROSIS
     Dosage: 20 MG, BID
     Route: 048
     Dates: start: 20120730, end: 20130930
  2. INC424 [Suspect]
     Dosage: 20 MG, BID
     Dates: end: 20131020

REACTIONS (2)
  - Eyelid ptosis [Recovering/Resolving]
  - Headache [Not Recovered/Not Resolved]
